FAERS Safety Report 8030665-7 (Version None)
Quarter: 2012Q1

REPORT INFORMATION
  Report Type: 
  Country: None (occurrence: None)
  Receive Date: 20120109
  Receipt Date: 20120103
  Transmission Date: 20120608
  Serious: Yes (Hospitalization)
  Sender: FDA-Public Use
  Company Number: PHEH2012US000606

PATIENT
  Age: 78 Year
  Sex: Female
  Weight: 64.399 kg

DRUGS (1)
  1. TOBI [Suspect]
     Dosage: 300 MG, BID IN A CYCLE OF 28 DAYS ON AND 28 DAYS OFF
     Dates: start: 20111020, end: 20120103

REACTIONS (2)
  - LUNG NEOPLASM MALIGNANT [None]
  - MALAISE [None]
